FAERS Safety Report 11128572 (Version 2)
Quarter: 2015Q2

REPORT INFORMATION
  Report Type: Report from Study
  Country: CA (occurrence: CA)
  Receive Date: 20150521
  Receipt Date: 20150528
  Transmission Date: 20150821
  Serious: Yes (Hospitalization)
  Sender: FDA-Public Use
  Company Number: CA-ABBVIE-15P-028-1394383-00

PATIENT
  Sex: Male

DRUGS (9)
  1. ZOFRAN [Concomitant]
     Active Substance: ONDANSETRON HYDROCHLORIDE
     Indication: PROPHYLAXIS OF NAUSEA AND VOMITING
     Dosage: 4MG IV OR PO Q4H PRN
     Dates: start: 20120803
  2. LACTULOSE. [Concomitant]
     Active Substance: LACTULOSE
     Indication: PRODUCT USED FOR UNKNOWN INDICATION
  3. LUPRON DEPOT [Suspect]
     Active Substance: LEUPROLIDE ACETATE
     Indication: PROSTATE CANCER
     Route: 030
     Dates: start: 20120210, end: 20150508
  4. XARELTO [Concomitant]
     Active Substance: RIVAROXABAN
     Indication: THROMBOSIS PROPHYLAXIS
     Route: 048
     Dates: start: 20120802
  5. COLACE [Concomitant]
     Active Substance: DOCUSATE SODIUM
     Indication: CONSTIPATION PROPHYLAXIS
     Route: 048
     Dates: start: 20120802
  6. BECONASE AQ [Concomitant]
     Active Substance: BECLOMETHASONE DIPROPIONATE MONOHYDRATE
     Indication: PRODUCT USED FOR UNKNOWN INDICATION
     Dosage: 2 SPRAYS IN EACH NOSTRIL TWICE DAILY
     Route: 045
  7. LUPRON DEPOT [Suspect]
     Active Substance: LEUPROLIDE ACETATE
     Route: 030
     Dates: start: 20121025, end: 20130722
  8. CEFAZOLIN [Concomitant]
     Active Substance: CEFAZOLIN
     Indication: PROPHYLAXIS
     Route: 042
     Dates: start: 20120802
  9. NARCAN [Concomitant]
     Active Substance: NALOXONE HYDROCHLORIDE
     Indication: TOXICITY TO VARIOUS AGENTS
     Dosage: 0,1MG STAT IF RESPIRATORY RAT IS BELOW 8/MINUTE. REPEAT Q1MIN
     Route: 042
     Dates: start: 20120802, end: 20120802

REACTIONS (1)
  - Osteoarthritis [Recovered/Resolved]

NARRATIVE: CASE EVENT DATE: 20120802
